FAERS Safety Report 11281203 (Version 1)
Quarter: 2015Q3

REPORT INFORMATION
  Report Type: Spontaneous
  Country: DE (occurrence: DE)
  Receive Date: 20150717
  Receipt Date: 20150717
  Transmission Date: 20151125
  Serious: Yes (Other)
  Sender: FDA-Public Use
  Company Number: DE-PFIZER INC-2015233705

PATIENT
  Age: 1 Day
  Sex: Male

DRUGS (8)
  1. AMOXICLAV [Concomitant]
     Active Substance: AMOXICILLIN\CLAVULANIC ACID
     Indication: BRONCHITIS
     Dosage: 28.2. - 28.2. GESTATIONAL WEEK
     Route: 064
  2. IBUPROFEN. [Concomitant]
     Active Substance: IBUPROFEN
     Indication: BRONCHITIS
     Dosage: 28.2. - 28.2. GESTATIONAL WEEK
     Route: 064
  3. RISPERDAL [Suspect]
     Active Substance: RISPERIDONE
     Indication: ANXIETY
     Dosage: 2 MG, 1XDAY, 8. - 36.6. GESTATIONAL WEEK
     Route: 064
  4. PARACETAMOL [Concomitant]
     Active Substance: ACETAMINOPHEN
     Indication: BRONCHITIS
     Dosage: 28.2. - 28.2. GESTATIONAL WEEK
     Route: 064
  5. SERTRALINE HCL [Suspect]
     Active Substance: SERTRALINE HYDROCHLORIDE
     Indication: DEPRESSION
     Dosage: 150 MG IN THE MORNING, 0. - 36.6. GESTATIONAL WEEK
     Route: 064
     Dates: start: 20140328, end: 20141211
  6. TAVOR [Concomitant]
     Active Substance: LORAZEPAM
     Indication: PANIC REACTION
     Dosage: 0.5 MG/D, AS NEEDED, 0. - 26. GESTATIONAL WEEK
     Route: 064
  7. TAVOR [Concomitant]
     Active Substance: LORAZEPAM
     Indication: SUICIDE ATTEMPT
     Dosage: DOSAGE BETWEEN 30 AND 75 MG, 9. - 10. GESTATIONAL WEEK
     Route: 064
  8. FOLIC ACID. [Concomitant]
     Active Substance: FOLIC ACID
     Indication: PROPHYLAXIS OF NEURAL TUBE DEFECT
     Dosage: 7.1. - 30. GESTATIONAL WEEK
     Route: 064

REACTIONS (6)
  - Drug withdrawal syndrome neonatal [Recovered/Resolved]
  - Hyperaesthesia [Recovered/Resolved]
  - Agitation neonatal [Recovered/Resolved]
  - Maternal exposure during pregnancy [Recovered/Resolved]
  - Premature baby [Recovered/Resolved]
  - Neonatal respiratory distress syndrome [Recovered/Resolved]

NARRATIVE: CASE EVENT DATE: 20141211
